FAERS Safety Report 12215593 (Version 3)
Quarter: 2016Q2

REPORT INFORMATION
  Report Type: Report from Study
  Country: PL (occurrence: PL)
  Receive Date: 20160328
  Receipt Date: 20160614
  Transmission Date: 20160815
  Serious: Yes (Life-Threatening, Hospitalization, Other)
  Sender: FDA-Public Use
  Company Number: PL-ASTRAZENECA-2016SE32921

PATIENT
  Age: 23893 Day
  Sex: Male

DRUGS (10)
  1. EZETIMIBUM [Concomitant]
     Indication: HYPERLIPIDAEMIA
     Dosage: 10.0MG UNKNOWN
     Route: 048
  2. INSULINI ASPARTUM [Concomitant]
     Indication: TYPE 2 DIABETES MELLITUS
     Route: 058
  3. ASPIRIN. [Concomitant]
     Active Substance: ASPIRIN
     Dosage: 150.0MG UNKNOWN
     Route: 048
     Dates: end: 20160225
  4. AZD6140 [Suspect]
     Active Substance: TICAGRELOR
     Indication: CARDIOVASCULAR EVENT PROPHYLAXIS
     Route: 048
     Dates: start: 20151218, end: 20160201
  5. ROSUVASTATINUM [Concomitant]
     Indication: HYPERLIPIDAEMIA
     Route: 048
  6. AZD6140 [Suspect]
     Active Substance: TICAGRELOR
     Indication: CARDIOVASCULAR EVENT PROPHYLAXIS
     Route: 048
     Dates: start: 20150626, end: 20151218
  7. METFORMINI HYDROCHLORIDUM [Concomitant]
     Indication: TYPE 2 DIABETES MELLITUS
     Dosage: 2550.0MG UNKNOWN
     Route: 048
  8. INSULINUM GLARGINE [Concomitant]
     Indication: TYPE 2 DIABETES MELLITUS
     Route: 058
  9. AMLODIPINUM [Concomitant]
     Indication: HYPERTENSION
     Dosage: 10.0MG UNKNOWN
     Route: 048
  10. VALSARTANUM [Concomitant]
     Indication: HYPERTENSION
     Dosage: 160.0MG UNKNOWN
     Route: 048
     Dates: end: 20160225

REACTIONS (1)
  - Angina pectoris [Recovered/Resolved]

NARRATIVE: CASE EVENT DATE: 20160226
